FAERS Safety Report 18425552 (Version 1)
Quarter: 2020Q4

REPORT INFORMATION
  Report Type: Spontaneous
  Country: US (occurrence: US)
  Receive Date: 20201026
  Receipt Date: 20201026
  Transmission Date: 20210114
  Serious: No
  Sender: FDA-Public Use
  Company Number: None

PATIENT
  Sex: Male

DRUGS (1)
  1. OTEZLA [Suspect]
     Active Substance: APREMILAST
     Indication: PSORIATIC ARTHROPATHY
     Dosage: ?          OTHER STRENGTH:10/20/30M;OTHER DOSE:10MG/20MG/30MG;OTHER FREQUENCY:QD TO BID;?
     Route: 048
     Dates: start: 20200930

REACTIONS (3)
  - Diarrhoea [None]
  - Vomiting [None]
  - Nausea [None]
